FAERS Safety Report 8152695-7 (Version None)
Quarter: 2012Q1

REPORT INFORMATION
  Report Type: 
  Country: None (occurrence: None)
  Receive Date: 20120221
  Receipt Date: 20120213
  Transmission Date: 20120608
  Serious: Yes (Hospitalization)
  Sender: FDA-Public Use
  Company Number: US-GENZYME-CAMP-1001795

PATIENT
  Sex: Female
  Weight: 97.052 kg

DRUGS (18)
  1. CALCIUM [Concomitant]
     Indication: PROPHYLAXIS
     Dosage: 600 MG, QD
     Route: 048
     Dates: start: 20090218
  2. PROZAC [Concomitant]
     Indication: DEPRESSION
     Dosage: 60 MG, QD
     Route: 048
     Dates: start: 20110209
  3. ALEMTUZUMAB [Suspect]
     Indication: MULTIPLE SCLEROSIS
     Dosage: 12 MG, QDX5
     Route: 042
     Dates: start: 20090316, end: 20090320
  4. NICOTINE [Concomitant]
     Indication: PROPHYLAXIS
     Dosage: 21 MG, QD
     Route: 062
     Dates: start: 20110729, end: 20110729
  5. MULTI-VITAMIN [Concomitant]
     Indication: PROPHYLAXIS
     Dosage: 1 TAB, QD
     Route: 048
     Dates: start: 20090218
  6. VITAMIN B12 NOS [Concomitant]
     Indication: PROPHYLAXIS
     Dosage: 1000 MG, QD
     Route: 048
     Dates: start: 20090218
  7. ACETAMINOPHEN [Concomitant]
     Indication: BACK PAIN
     Dosage: 1000 MG, PRN
     Route: 048
     Dates: start: 20100225
  8. TYLENOL PM [Concomitant]
     Indication: INSOMNIA
     Dosage: 2 CAPS, UNK
     Route: 048
     Dates: start: 20110621
  9. ACETAMINOPHEN [Concomitant]
     Indication: HEADACHE
     Dosage: 1000 MG, PRN
     Route: 048
     Dates: start: 19700101
  10. TRAZODONE HYDROCHLORIDE [Concomitant]
     Indication: INSOMNIA
     Dosage: 100 MG, QD
     Route: 048
     Dates: start: 20090916
  11. LOPERAMIDE HCL [Concomitant]
     Indication: DIARRHOEA
     Dosage: 2 MG, PRN
     Route: 048
     Dates: start: 20081001
  12. ALEMTUZUMAB [Suspect]
     Dosage: 12 MG, QDX3
     Route: 042
     Dates: start: 20100316, end: 20100318
  13. ASCORBIC ACID [Concomitant]
     Indication: PROPHYLAXIS
     Dosage: 1000 MG, QD
     Route: 048
     Dates: start: 20090218
  14. PROZAC [Concomitant]
     Indication: ANXIETY
  15. VICODIN ES [Concomitant]
     Indication: HERPES ZOSTER
     Dosage: 1 TAB, TID
     Route: 048
     Dates: start: 20110309
  16. AMANTADINE HCL [Concomitant]
     Indication: FATIGUE
     Dosage: 100 MG, QD
     Route: 048
     Dates: start: 20110617
  17. RITALIN [Concomitant]
     Indication: FATIGUE
     Dosage: 10 MG, BID
     Route: 048
     Dates: start: 20110707
  18. VITAMIN D [Concomitant]
     Indication: PROPHYLAXIS
     Dosage: 1000 MG, QD
     Route: 048
     Dates: start: 20090218

REACTIONS (1)
  - DEEP VEIN THROMBOSIS [None]
